FAERS Safety Report 6302576-6 (Version None)
Quarter: 2009Q3

REPORT INFORMATION
  Report Type: 
  Country: None (occurrence: None)
  Receive Date: 20090810
  Receipt Date: 20090728
  Transmission Date: 20100115
  Serious: Yes (Other)
  Sender: FDA-Public Use
  Company Number: US-AMGEN-US352143

PATIENT
  Sex: Female
  Weight: 102.2 kg

DRUGS (10)
  1. NEULASTA [Suspect]
     Indication: CHEMOTHERAPY
     Dates: start: 20090424
  2. RITUXAN [Suspect]
     Route: 065
     Dates: start: 20090423
  3. CYTOXAN [Suspect]
     Route: 065
  4. DOXORUBICIN HCL [Suspect]
     Route: 065
  5. VINCRISTINE [Suspect]
     Route: 065
  6. MOTRIN [Concomitant]
     Route: 065
     Dates: start: 20090204
  7. FLEXERIL [Concomitant]
     Route: 065
     Dates: start: 20090204
  8. ALLOPURINOL [Concomitant]
     Route: 065
     Dates: start: 20090415
  9. PRILOSEC [Concomitant]
     Route: 065
     Dates: start: 20090415
  10. TYLENOL (CAPLET) [Concomitant]

REACTIONS (5)
  - BONE PAIN [None]
  - KERATITIS [None]
  - MALAISE [None]
  - NEUTROPENIA [None]
  - THERAPEUTIC RESPONSE DECREASED [None]
